FAERS Safety Report 16756193 (Version 1)
Quarter: 2019Q3

REPORT INFORMATION
  Report Type: Spontaneous
  Country: FR (occurrence: FR)
  Receive Date: 20190829
  Receipt Date: 20190829
  Transmission Date: 20191005
  Serious: Yes (Hospitalization)
  Sender: FDA-Public Use
  Company Number: FR-ASTRAZENECA-2019SF20806

PATIENT
  Age: 57 Year
  Sex: Male
  Weight: 102 kg

DRUGS (14)
  1. EFFEXOR LP [Suspect]
     Active Substance: VENLAFAXINE HYDROCHLORIDE
     Indication: MAJOR DEPRESSION
     Route: 048
     Dates: end: 20190710
  2. LANSOPRAZOLE. [Concomitant]
     Active Substance: LANSOPRAZOLE
  3. ACIDE FOLIQUE [Concomitant]
     Active Substance: FOLIC ACID
  4. SPIRIVA [Suspect]
     Active Substance: TIOTROPIUM BROMIDE MONOHYDRATE
     Indication: CHRONIC OBSTRUCTIVE PULMONARY DISEASE
     Route: 055
  5. NICOPATCH [Concomitant]
     Active Substance: NICOTINE
     Dosage: 21 MG/24H
     Route: 062
  6. SERETIDE [Concomitant]
     Active Substance: FLUTICASONE PROPIONATE\SALMETEROL XINAFOATE
     Indication: CHRONIC OBSTRUCTIVE PULMONARY DISEASE
     Route: 055
  7. NICOPATCH [Concomitant]
     Active Substance: NICOTINE
     Route: 048
  8. VITAMINE B1 [Concomitant]
     Active Substance: THIAMINE HYDROCHLORIDE
  9. IMOVANE [Concomitant]
     Active Substance: ZOPICLONE
  10. VITAMIN B6 [Concomitant]
     Active Substance: PYRIDOXINE HYDROCHLORIDE
  11. SERESTA [Concomitant]
     Active Substance: OXAZEPAM
  12. VERAPAMIL [Concomitant]
     Active Substance: VERAPAMIL HYDROCHLORIDE
  13. XEROQUEL LP [Suspect]
     Active Substance: QUETIAPINE FUMARATE
     Indication: MAJOR DEPRESSION
     Route: 048
     Dates: end: 20190710
  14. ESIDREX [Concomitant]
     Active Substance: HYDROCHLOROTHIAZIDE
     Indication: HYPERTENSION
     Route: 048

REACTIONS (1)
  - Bladder dilatation [Recovered/Resolved]

NARRATIVE: CASE EVENT DATE: 20190709
